FAERS Safety Report 10309082 (Version 1)
Quarter: 2014Q3

REPORT INFORMATION
  Report Type: Spontaneous
  Country: US (occurrence: None)
  Receive Date: 20140714
  Receipt Date: 20140714
  Transmission Date: 20150326
  Serious: Yes (Other)
  Sender: FDA-Public Use
  Company Number: 2014VER00076

PATIENT
  Age: 18 Year
  Sex: Female

DRUGS (3)
  1. TRIAMCINOLONE TOPICAL CREAM [Concomitant]
  2. MYORISAN [Suspect]
     Active Substance: ISOTRETINOIN
     Indication: ACNE
     Route: 048
     Dates: start: 20140423, end: 20140621
  3. DEPO [Concomitant]

REACTIONS (4)
  - Alcohol use [None]
  - Mood altered [None]
  - Anger [None]
  - Mood swings [None]

NARRATIVE: CASE EVENT DATE: 2014
